FAERS Safety Report 5474796-4 (Version None)
Quarter: 2007Q4

REPORT INFORMATION
  Report Type: 
  Country: None (occurrence: None)
  Receive Date: 20071002
  Receipt Date: 20070928
  Transmission Date: 20080405
  Serious: Yes (Disabling)
  Sender: FDA-Public Use
  Company Number: B0489052A

PATIENT
  Age: 54 Year
  Sex: Male

DRUGS (1)
  1. VALTREX [Suspect]
     Indication: HERPES ZOSTER
     Dosage: 1000MG SINGLE DOSE
     Route: 048

REACTIONS (2)
  - HALLUCINATION [None]
  - VISUAL ACUITY REDUCED [None]
